FAERS Safety Report 5202426-5 (Version None)
Quarter: 2007Q1

REPORT INFORMATION
  Report Type: 
  Country: None (occurrence: None)
  Receive Date: 20070109
  Receipt Date: 20070102
  Transmission Date: 20070707
  Serious: Yes (Death, Hospitalization, Other)
  Sender: FDA-Public Use
  Company Number: PHEH2006US03403

PATIENT
  Age: 80 Year
  Sex: Male
  Weight: 92.063 kg

DRUGS (25)
  1. SYNTHROID [Concomitant]
     Dosage: 0.2 MG, QD
  2. PROCRIT [Concomitant]
     Dosage: 80,000 TWICE/WEEK
  3. AMIODARONE HCL [Concomitant]
     Dosage: QD
  4. METOPROLOL SUCCINATE [Concomitant]
     Dosage: UNK, 1/2 BID
  5. PSEUDOEPHEDRINE HCL [Concomitant]
     Dosage: UNK, PRN
  6. XALATAN [Concomitant]
     Dosage: UNK GTT, QD
  7. PREDNISONE TAB [Concomitant]
     Dosage: 20 MG, QOD
  8. HALOTESTIN [Concomitant]
     Dosage: 10 MG, 2 BID
  9. THALIDOMIDE [Concomitant]
     Dosage: 100 MG, QD
  10. HYDROCHLOROTHIAZIDE [Concomitant]
     Dosage: UNK, PRN
  11. CEFTIN [Concomitant]
     Dosage: 500 MG, BID
  12. VITAMIN E [Concomitant]
     Dosage: 400 IU, QD
  13. CLARITIN [Concomitant]
  14. EXJADE [Suspect]
     Indication: IRON OVERLOAD
     Dosage: 500 MG, QID
     Route: 048
     Dates: start: 20060115, end: 20060308
  15. EXJADE [Suspect]
     Dosage: 1000 MG, QD
  16. EXJADE [Suspect]
     Dosage: 1000 MG, QD
     Route: 048
     Dates: start: 20060925, end: 20061030
  17. EXJADE [Suspect]
     Dosage: 500 MG, QD
     Route: 048
     Dates: start: 20061101
  18. MYCELEX [Concomitant]
  19. EPOGEN [Concomitant]
     Dosage: 80000 U, 3X/WEEK
     Dates: start: 20060911
  20. EPOGEN [Concomitant]
     Dosage: 80000 UNK, 2XWK
  21. VICODIN [Concomitant]
     Dosage: UNK, PRN
  22. METAMUCIL [Concomitant]
     Dosage: UNK, QD
  23. SEPTRA [Concomitant]
  24. COUMADIN [Concomitant]
  25. LASIX [Concomitant]

REACTIONS (35)
  - ABDOMINAL DISCOMFORT [None]
  - ALANINE AMINOTRANSFERASE INCREASED [None]
  - ASPARTATE AMINOTRANSFERASE INCREASED [None]
  - BILIRUBIN CONJUGATED INCREASED [None]
  - BIOPSY LIVER [None]
  - BLOOD ALBUMIN DECREASED [None]
  - BLOOD ALKALINE PHOSPHATASE INCREASED [None]
  - BLOOD BILIRUBIN INCREASED [None]
  - BLOOD CALCIUM DECREASED [None]
  - BLOOD CREATININE INCREASED [None]
  - BLOOD PHOSPHORUS INCREASED [None]
  - BLOOD PRESSURE DECREASED [None]
  - BLOOD UREA INCREASED [None]
  - DECREASED APPETITE [None]
  - DISEASE PROGRESSION [None]
  - DIZZINESS [None]
  - FATIGUE [None]
  - HAEMATOCRIT DECREASED [None]
  - HAEMOGLOBIN DECREASED [None]
  - HAEMOSIDEROSIS [None]
  - HEPATIC FAILURE [None]
  - JAUNDICE [None]
  - MYELOPROLIFERATIVE DISORDER [None]
  - PAIN [None]
  - PITTING OEDEMA [None]
  - PLATELET COUNT DECREASED [None]
  - RASH PUSTULAR [None]
  - RENAL FAILURE [None]
  - SKIN DISCOLOURATION [None]
  - SKIN LESION [None]
  - SPLENECTOMY [None]
  - SWELLING [None]
  - URINE ANALYSIS ABNORMAL [None]
  - WEIGHT DECREASED [None]
  - WHITE BLOOD CELL COUNT INCREASED [None]
